FAERS Safety Report 5715726-7 (Version None)
Quarter: 2008Q2

REPORT INFORMATION
  Report Type: 
  Country: None (occurrence: None)
  Receive Date: 20080423
  Receipt Date: 20080423
  Transmission Date: 20081010
  Serious: No
  Sender: FDA-Public Use
  Company Number: None

PATIENT
  Sex: Male
  Weight: 109.5 kg

DRUGS (8)
  1. TAXOTERE [Suspect]
     Dosage: 165 MG
  2. COMBIVENT [Concomitant]
  3. LOMOTIL [Concomitant]
  4. LUPRON [Concomitant]
  5. PREDNISONE [Concomitant]
  6. PYRIDIUM [Concomitant]
  7. XANAX [Concomitant]
  8. ZOFRAN [Concomitant]

REACTIONS (2)
  - NEUTROPHIL PERCENTAGE DECREASED [None]
  - WHITE BLOOD CELL COUNT DECREASED [None]
